FAERS Safety Report 6959955-3 (Version None)
Quarter: 2010Q3

REPORT INFORMATION
  Report Type: 
  Country: None (occurrence: None)
  Receive Date: 20100901
  Receipt Date: 20100820
  Transmission Date: 20110219
  Serious: Yes (Other)
  Sender: FDA-Public Use
  Company Number: PHHY2010US55513

PATIENT
  Sex: Female

DRUGS (1)
  1. RECLAST [Suspect]
     Dosage: 05 MG, HALF YEAR
     Route: 042

REACTIONS (5)
  - ACCESSORY NERVE DISORDER [None]
  - DIABETES MELLITUS [None]
  - LIMB DISCOMFORT [None]
  - LUNG DISORDER [None]
  - MUSCULOSKELETAL STIFFNESS [None]
